FAERS Safety Report 4560757-6 (Version None)
Quarter: 2005Q1

REPORT INFORMATION
  Report Type: 
  Country: None (occurrence: None)
  Receive Date: 20050124
  Receipt Date: 20050118
  Transmission Date: 20050727
  Serious: Yes (Hospitalization, Other)
  Sender: FDA-Public Use
  Company Number: FRWYE351118JAN05

PATIENT
  Age: 64 Year
  Sex: Male

DRUGS (1)
  1. EFFEXOR [Suspect]
     Dosage: ORAL
     Route: 048
     Dates: start: 20010515, end: 20010702

REACTIONS (1)
  - MONONEUROPATHY MULTIPLEX [None]
